FAERS Safety Report 8343843 (Version 6)
Quarter: 2013Q1

REPORT INFORMATION
  Report Type: Spontaneous
  Country: US (occurrence: US)
  Receive Date: 20120119
  Receipt Date: 20130222
  Transmission Date: 20140127
  Serious: Yes (Hospitalization, Other)
  Sender: FDA-Public Use
  Company Number: US-009507513-1201USA02274

PATIENT
  Sex: Female

DRUGS (2)
  1. FOSAMAX [Suspect]
     Indication: OSTEOPOROSIS PROPHYLAXIS
     Dosage: 10 MG, QD
     Route: 048
     Dates: start: 19970219, end: 20040310
  2. FOSAMAX [Suspect]
     Dosage: 70 MG, QW
     Route: 048
     Dates: start: 20010905, end: 20040310

REACTIONS (10)
  - Femur fracture [Unknown]
  - Low turnover osteopathy [Unknown]
  - Anxiety [Not Recovered/Not Resolved]
  - Tooth disorder [Unknown]
  - Hypertension [Unknown]
  - Blood cholesterol increased [Unknown]
  - Osteoarthritis [Unknown]
  - Induration [Unknown]
  - Insomnia [None]
  - Nervousness [None]
